FAERS Safety Report 4895574-0 (Version None)
Quarter: 2006Q1

REPORT INFORMATION
  Report Type: 
  Country: None (occurrence: None)
  Receive Date: 20060130
  Receipt Date: 20060118
  Transmission Date: 20060701
  Serious: Yes (Hospitalization)
  Sender: FDA-Public Use
  Company Number: JP-ROCHE-433062

PATIENT
  Age: 6 Year

DRUGS (6)
  1. TAMIFLU [Suspect]
     Route: 048
     Dates: start: 20060108, end: 20060112
  2. TOMIRON [Concomitant]
     Dosage: ORAL FORMULATION (NOT OTHERWISE SPECIFIED).
     Route: 048
  3. ASVERIN [Concomitant]
     Dosage: ORAL FORMULATION (NOT OTHERWISE SPECIFIED).
     Route: 048
  4. PERIACTIN [Concomitant]
     Dosage: ORAL FORMULATION (NOT OTHERWISE SPECIFIED).
     Route: 048
  5. MUCODYNE [Concomitant]
     Dosage: ORAL FORMULATION (NOT OTHERWISE SPECIFIED).
     Route: 048
  6. ENTERONON-R [Concomitant]
     Route: 048

REACTIONS (2)
  - ENCEPHALOPATHY [None]
  - HALLUCINATION [None]
